FAERS Safety Report 20679198 (Version 2)
Quarter: 2022Q2

REPORT INFORMATION
  Report Type: Report from Study
  Country: US (occurrence: US)
  Receive Date: 20220406
  Receipt Date: 20220411
  Transmission Date: 20220721
  Serious: No
  Sender: FDA-Public Use
  Company Number: US-NOVARTISTESTPH-NVSC2022US078271

PATIENT
  Age: 26 Year
  Sex: Female

DRUGS (1)
  1. ENTRESTO [Suspect]
     Active Substance: SACUBITRIL\VALSARTAN
     Indication: Cardiac failure chronic
     Dosage: UNK UNK, BID
     Route: 048
     Dates: start: 20220315

REACTIONS (4)
  - Cough [Not Recovered/Not Resolved]
  - Nasopharyngitis [Recovered/Resolved]
  - Dysphonia [Not Recovered/Not Resolved]
  - Nasopharyngitis [Not Recovered/Not Resolved]

NARRATIVE: CASE EVENT DATE: 20220301
